FAERS Safety Report 10036302 (Version 1)
Quarter: 2014Q1

REPORT INFORMATION
  Report Type: Spontaneous
  Country: US (occurrence: US)
  Receive Date: 20140325
  Receipt Date: 20140325
  Transmission Date: 20141002
  Serious: Yes (Hospitalization, Other)
  Sender: FDA-Public Use
  Company Number: US-GILEAD-2014-0097708

PATIENT
  Age: 82 Year
  Sex: Female
  Weight: 63.13 kg

DRUGS (9)
  1. RANEXA [Suspect]
     Indication: ANGINA PECTORIS
     Dosage: 500 MG, BID
     Route: 048
     Dates: start: 201306
  2. GLIPIZIDE [Concomitant]
  3. METHIMAZOLE [Concomitant]
  4. PANTOPRAZOLE [Concomitant]
  5. LIPITOR [Concomitant]
  6. NEURONTIN [Concomitant]
  7. LOSARTAN [Concomitant]
  8. METOPROLOL [Concomitant]
  9. NORVASC [Concomitant]

REACTIONS (2)
  - Chest pain [Not Recovered/Not Resolved]
  - Renal failure [Not Recovered/Not Resolved]
